FAERS Safety Report 10160105 (Version 1)
Quarter: 2014Q2

REPORT INFORMATION
  Report Type: Report from Study
  Country: US (occurrence: US)
  Receive Date: 20140508
  Receipt Date: 20140508
  Transmission Date: 20141212
  Serious: Yes (Hospitalization)
  Sender: FDA-Public Use
  Company Number: US-SA-2014SA056151

PATIENT
  Age: 67 Year
  Sex: Male
  Weight: 106.59 kg

DRUGS (3)
  1. DOCETAXEL [Suspect]
     Indication: PROSTATE CANCER
     Route: 065
     Dates: start: 20090930
  2. BICALUTAMIDE [Suspect]
     Indication: PROSTATE CANCER
     Route: 065
     Dates: start: 20090930
  3. FLUTAMIDE [Suspect]
     Indication: PROSTATE CANCER
     Route: 065
     Dates: start: 20090930

REACTIONS (1)
  - Urinary tract obstruction [Recovered/Resolved]
